FAERS Safety Report 21300013 (Version 2)
Quarter: 2022Q4

REPORT INFORMATION
  Report Type: Spontaneous
  Country: US (occurrence: US)
  Receive Date: 20220906
  Receipt Date: 20221217
  Transmission Date: 20230113
  Serious: No
  Sender: FDA-Public Use
  Company Number: US-PADAGIS-2022PAD00320

PATIENT

DRUGS (5)
  1. KETOCONAZOLE [Suspect]
     Active Substance: KETOCONAZOLE
     Indication: Pruritus
     Dosage: UNK (TWICE A WEEK) (AS DIRECTED)
     Route: 065
  2. KETOCONAZOLE [Suspect]
     Active Substance: KETOCONAZOLE
     Dosage: UNK (AS DIRECTED)
     Route: 061
  3. CICLOPIROX [Suspect]
     Active Substance: CICLOPIROX
     Indication: Impetigo
     Dosage: UNK (AS DIRECTED)
     Route: 065
  4. CLOBETASOL PROPIONATE [Suspect]
     Active Substance: CLOBETASOL PROPIONATE
     Indication: Impetigo
     Dosage: UNK (AS DIRECTED)
     Route: 065
  5. FLUOCINOLONE [Concomitant]
     Active Substance: FLUOCINOLONE
     Indication: Product used for unknown indication
     Dosage: AS DIRECTED, FROM TIME TO TIME
     Route: 061

REACTIONS (5)
  - Depression [Unknown]
  - Drug ineffective [Unknown]
  - Wrong technique in product usage process [Unknown]
  - Product use issue [Unknown]
  - Product use in unapproved indication [Unknown]
